FAERS Safety Report 6698963-7 (Version None)
Quarter: 2010Q2

REPORT INFORMATION
  Report Type: 
  Country: None (occurrence: None)
  Receive Date: 20100427
  Receipt Date: 20100416
  Transmission Date: 20101027
  Serious: Yes (Hospitalization)
  Sender: FDA-Public Use
  Company Number: B0641975A

PATIENT
  Sex: Female
  Weight: 62 kg

DRUGS (13)
  1. LAPATINIB [Suspect]
     Dates: end: 20100309
  2. OXALIPLATIN [Suspect]
     Dates: end: 20100224
  3. FLUOROURACIL [Suspect]
     Dates: end: 20100303
  4. FOLINIC ACID [Suspect]
     Dates: end: 20100303
  5. METOPROLOL [Concomitant]
     Indication: HYPERTENSION
     Dosage: 95MG TWICE PER DAY
  6. RAMIPRIL [Concomitant]
     Indication: HYPERTENSION
     Dosage: 2.5MG AS REQUIRED
     Dates: start: 20090506
  7. PREDNISOLONE [Concomitant]
     Indication: RHEUMATOID ARTHRITIS
     Dosage: 7MG PER DAY
     Dates: start: 20090325
  8. CREON [Concomitant]
     Indication: PANCREATIC INSUFFICIENCY
     Dosage: 25000MG SIX TIMES PER DAY
     Dates: start: 20090506
  9. LOPERAMIDE [Concomitant]
     Dosage: 2MG AS REQUIRED
     Dates: start: 20090715
  10. PANTOZOL [Concomitant]
     Indication: PROPHYLAXIS
     Dosage: 40MG PER DAY
     Dates: start: 20090506
  11. ASPIRIN [Concomitant]
  12. LANTUS [Concomitant]
  13. ACTRAPID [Concomitant]

REACTIONS (3)
  - DYSARTHRIA [None]
  - MUSCULAR WEAKNESS [None]
  - TRANSIENT ISCHAEMIC ATTACK [None]
